FAERS Safety Report 10091783 (Version 1)
Quarter: 2014Q2

REPORT INFORMATION
  Report Type: Spontaneous
  Country: US (occurrence: US)
  Receive Date: 20140421
  Receipt Date: 20140421
  Transmission Date: 20141212
  Serious: No
  Sender: FDA-Public Use
  Company Number: US-PURDUE-USA-2005-0020666

PATIENT
  Sex: Female
  Weight: 72.56 kg

DRUGS (5)
  1. OXYIR [Suspect]
     Indication: PAIN
     Dosage: 5 MG, UNK
     Route: 048
  2. OXYCONTIN TABLETS [Concomitant]
     Indication: PAIN
     Dosage: 10 MG, QID
     Route: 048
  3. NEURONTIN [Concomitant]
     Indication: PAIN
     Dosage: 300 MG, TID
     Route: 048
  4. LASIX                              /00032601/ [Concomitant]
     Indication: PRODUCT USED FOR UNKNOWN INDICATION
  5. NORVASC [Concomitant]
     Indication: PRODUCT USED FOR UNKNOWN INDICATION
     Dosage: UNK, UNK

REACTIONS (5)
  - Weight increased [Unknown]
  - Drug ineffective [Unknown]
  - Pain [Unknown]
  - Pain in extremity [Unknown]
  - Poor quality sleep [Unknown]
